FAERS Safety Report 9258163 (Version 1)
Quarter: 2013Q1

REPORT INFORMATION
  Report Type: Spontaneous
  Country: US (occurrence: None)
  Receive Date: 20121212
  Receipt Date: 20121212
  Transmission Date: 20140127
  Serious: No
  Sender: FDA-Public Use
  Company Number: 1209USA003810

PATIENT
  Age: 53 Year
  Sex: Male

DRUGS (3)
  1. PEGINTRON [Suspect]
     Indication: HEPATITIS C
  2. RIBASPHERE [Suspect]
  3. VICTRELIS [Suspect]

REACTIONS (3)
  - Pyrexia [None]
  - Device malfunction [None]
  - Drug dose omission [None]
